FAERS Safety Report 18339866 (Version 2)
Quarter: 2022Q4

REPORT INFORMATION
  Report Type: Spontaneous
  Country: DE (occurrence: DE)
  Receive Date: 20201002
  Receipt Date: 20221029
  Transmission Date: 20230113
  Serious: Yes (Hospitalization)
  Sender: FDA-Public Use
  Company Number: DE-ADRED-05475-01

PATIENT
  Age: 70 Year
  Sex: Male
  Weight: 93 kg

DRUGS (7)
  1. LEUPROLIDE ACETATE [Suspect]
     Active Substance: LEUPROLIDE ACETATE
     Indication: Product used for unknown indication
     Dosage: NK MG, LAST 25-FEB-2020
     Route: 058
  2. LEVOTHYROXINE SODIUM [Concomitant]
     Active Substance: LEVOTHYROXINE SODIUM
     Indication: Product used for unknown indication
     Dosage: 50 MICROGRAM DAILY; 1-0-0-0
     Route: 048
  3. BISOPROLOL [Concomitant]
     Active Substance: BISOPROLOL
     Indication: Product used for unknown indication
     Dosage: .5 DOSAGE FORMS DAILY; 10 MG, 0.5-0-0.5-0
     Route: 048
  4. HYDROCHLOROTHIAZIDE\RAMIPRIL [Concomitant]
     Active Substance: HYDROCHLOROTHIAZIDE\RAMIPRIL
     Indication: Product used for unknown indication
     Dosage: 1 DOSAGE FORMS DAILY; 12.5|5 MG, 1-0-0-0
     Route: 048
  5. AMLODIPINE BESYLATE [Concomitant]
     Active Substance: AMLODIPINE BESYLATE
     Indication: Product used for unknown indication
     Dosage: 5 MILLIGRAM DAILY;  1-0-0-0
     Route: 048
  6. TAMSULOSIN [Concomitant]
     Active Substance: TAMSULOSIN
     Indication: Product used for unknown indication
     Dosage: .4 MILLIGRAM DAILY;  0-0-1-0, SUSTAINED-RELEASE CAPSULES
     Route: 048
  7. RAMIPRIL [Concomitant]
     Active Substance: RAMIPRIL
     Indication: Product used for unknown indication
     Dosage: 5 MILLIGRAM DAILY;  0-0-1-0
     Route: 048

REACTIONS (3)
  - Injection site inflammation [Unknown]
  - Injection site induration [Unknown]
  - Injection site extravasation [Unknown]
